FAERS Safety Report 10190889 (Version 1)
Quarter: 2014Q2

REPORT INFORMATION
  Report Type: Spontaneous
  Country: US (occurrence: None)
  Receive Date: 20140521
  Receipt Date: 20140521
  Transmission Date: 20141212
  Serious: Yes (Life-Threatening, Hospitalization, Disabling)
  Sender: FDA-Public Use
  Company Number: None

PATIENT
  Age: 53 Year
  Sex: Female

DRUGS (9)
  1. DEPOMEDROL [Suspect]
     Indication: SPINAL FUSION SURGERY
     Route: 061
     Dates: start: 20081201
  2. DEPOMEDROL [Suspect]
     Indication: NERVE BLOCK
     Route: 061
     Dates: start: 20081201
  3. VITOSS SYNTHETIC BIOACTIVE [Suspect]
     Indication: SPINAL FUSION SURGERY
     Dates: start: 20081201
  4. HYDROCODONE [Concomitant]
  5. SOMA [Concomitant]
  6. XANAX [Concomitant]
  7. CHOLESTEROL [Concomitant]
  8. PEPCID [Concomitant]
  9. SERTRALINE [Concomitant]

REACTIONS (2)
  - Fungal infection [None]
  - Post procedural infection [None]
